FAERS Safety Report 4650072-4 (Version None)
Quarter: 2005Q2

REPORT INFORMATION
  Report Type: 
  Country: None (occurrence: None)
  Receive Date: 20050428
  Receipt Date: 20050425
  Transmission Date: 20051028
  Serious: Yes (Life-Threatening)
  Sender: FDA-Public Use
  Company Number: 2005-124783-NL

PATIENT
  Age: 39 Year
  Sex: Male

DRUGS (3)
  1. ROCURONIUM BROMIDE [Suspect]
     Indication: INDUCTION OF ANAESTHESIA
     Dosage: 40 MG ONCE INTRAVENOUS BOLUS
     Route: 040
     Dates: start: 20041115, end: 20041115
  2. FENTANYL CITRATE [Suspect]
     Indication: INDUCTION OF ANAESTHESIA
     Dosage: 0.2 MG ONCE INTRAVENOUS BOLUS
     Route: 040
     Dates: start: 20041115
  3. PROPOFOL [Suspect]
     Indication: INDUCTION OF ANAESTHESIA
     Dosage: 200 MG ONCE INTRAVENOUS DRIP
     Route: 041
     Dates: start: 20041115

REACTIONS (7)
  - BRONCHIAL OBSTRUCTION [None]
  - BRONCHOSPASM [None]
  - HYPOVENTILATION [None]
  - HYPOXIA [None]
  - INTUBATION COMPLICATION [None]
  - PNEUMOTHORAX [None]
  - TACHYCARDIA [None]
